FAERS Safety Report 4818381-3 (Version None)
Quarter: 2005Q4

REPORT INFORMATION
  Report Type: 
  Country: None (occurrence: None)
  Receive Date: 20051102
  Receipt Date: 20051026
  Transmission Date: 20060501
  Serious: Yes (Hospitalization)
  Sender: FDA-Public Use
  Company Number: US-SANOFI-SYNTHELABO-F03200500163

PATIENT
  Age: 76 Year
  Sex: Male

DRUGS (7)
  1. OXALIPLATIN [Suspect]
     Indication: CARCINOID TUMOUR
     Route: 042
     Dates: start: 20050929, end: 20050929
  2. AMBIEN [Suspect]
     Indication: INSOMNIA
     Route: 048
     Dates: start: 20051006
  3. S-1 (TEGAFUR, GIMERACIL, OTERACIL POTASSIUM) [Suspect]
     Indication: CARCINOID TUMOUR
     Route: 048
     Dates: start: 20050929, end: 20051012
  4. BEVACIZUMAB [Suspect]
     Indication: CARCINOID TUMOUR
     Route: 042
     Dates: start: 20050929, end: 20050929
  5. ZOFRAN [Concomitant]
     Dosage: EVERY 8 HOURS AS NEEDED (1 IN 8 HOURS)
     Route: 048
     Dates: start: 20050930
  6. LOMOTIL [Concomitant]
     Dosage: UNK
     Route: 048
  7. KYTRIL [Concomitant]
     Dosage: UNK
     Route: 048
     Dates: start: 20051003

REACTIONS (7)
  - ASTHENIA [None]
  - DEHYDRATION [None]
  - DYSPHAGIA [None]
  - INFECTION [None]
  - INSOMNIA [None]
  - OESOPHAGITIS [None]
  - RASH [None]
